FAERS Safety Report 10906641 (Version 1)
Quarter: 2015Q1

REPORT INFORMATION
  Report Type: Spontaneous
  Country: US (occurrence: None)
  Receive Date: 20150309
  Receipt Date: 20150309
  Transmission Date: 20150721
  Serious: No
  Sender: FDA-Public Use
  Company Number: None

PATIENT
  Sex: Male

DRUGS (19)
  1. B50 SUPP [Concomitant]
  2. ZYTIGA [Suspect]
     Active Substance: ABIRATERONE ACETATE
     Indication: PROSTATE CANCER
     Route: 048
     Dates: start: 20131219
  3. TRAMADOL [Concomitant]
     Active Substance: TRAMADOL
  4. CALCIUM [Concomitant]
     Active Substance: CALCIUM
  5. VITAMIN C [Concomitant]
     Active Substance: ASCORBIC ACID
  6. MOVEFERR [Concomitant]
  7. DIOVAN HCT [Concomitant]
     Active Substance: HYDROCHLOROTHIAZIDE\VALSARTAN
  8. BONIVA [Concomitant]
     Active Substance: IBANDRONATE SODIUM
  9. G/S VITAMIN D [Concomitant]
  10. FORTEO [Concomitant]
     Active Substance: TERIPARATIDE
  11. PREDNISONE. [Concomitant]
     Active Substance: PREDNISONE
  12. FOSAMAX + D [Concomitant]
  13. LIOTHYRONINE [Concomitant]
     Active Substance: LIOTHYRONINE
  14. CASODEX [Concomitant]
     Active Substance: BICALUTAMIDE
  15. ZYRTEC [Concomitant]
     Active Substance: CETIRIZINE HYDROCHLORIDE
  16. FISH OIL [Concomitant]
     Active Substance: FISH OIL
  17. VITAMIN D [Concomitant]
     Active Substance: CHOLECALCIFEROL
  18. VITAMIN E [Concomitant]
     Active Substance: .ALPHA.-TOCOPHEROL
  19. LUPRON DEPOT INJ [Concomitant]

REACTIONS (1)
  - Drug ineffective [None]
